FAERS Safety Report 10568154 (Version 1)
Quarter: 2014Q4

REPORT INFORMATION
  Report Type: Spontaneous
  Country: US (occurrence: None)
  Receive Date: 20141105
  Receipt Date: 20141105
  Transmission Date: 20150529
  Serious: Yes (Disabling)
  Sender: FDA-Public Use
  Company Number: None

PATIENT
  Age: 55 Year
  Sex: Female
  Weight: 62.6 kg

DRUGS (1)
  1. MYRBETRIQ [Suspect]
     Active Substance: MIRABEGRON
     Indication: HYPERTONIC BLADDER
     Dosage: 1 PILL DAILY
     Route: 048
     Dates: start: 20140601, end: 20141015

REACTIONS (2)
  - Discomfort [None]
  - Arthralgia [None]

NARRATIVE: CASE EVENT DATE: 20141027
